FAERS Safety Report 24393546 (Version 1)
Quarter: 2024Q4

REPORT INFORMATION
  Report Type: Spontaneous
  Country: US (occurrence: None)
  Receive Date: 20241003
  Receipt Date: 20241003
  Transmission Date: 20250115
  Serious: No
  Sender: Public
  Company Number: None

PATIENT
  Age: 69 Year
  Sex: Male
  Weight: 100.7 kg

DRUGS (1)
  1. STELARA [Suspect]
     Active Substance: USTEKINUMAB
     Indication: Psoriasis
     Dosage: FREQUENCY : AS DIRECTED;?INJECT 45 MG SUBCUTANEOUSLY  ON DAY 0 AND DAY 28 AS DIRECTED
     Route: 058
     Dates: start: 201902

REACTIONS (1)
  - Cardiac operation [None]
